FAERS Safety Report 4791873-1 (Version None)
Quarter: 2005Q4

REPORT INFORMATION
  Report Type: 
  Country: None (occurrence: None)
  Receive Date: 20051005
  Receipt Date: 20050908
  Transmission Date: 20060501
  Serious: Yes (Death)
  Sender: FDA-Public Use
  Company Number: 2005RR-00783

PATIENT
  Age: 73 Year
  Sex: Female

DRUGS (17)
  1. METFORMIN HYDROCHLORIDE [Suspect]
     Indication: DIABETES MELLITUS NON-INSULIN-DEPENDENT
     Dosage: ORAL
     Route: 048
  2. RAMIPRIL [Concomitant]
  3. ATENOLOL [Concomitant]
  4. SIMVASTATIN [Concomitant]
  5. LEVOTHYROXINE [Concomitant]
  6. BENDROFLUMETHIAZIDE [Concomitant]
  7. METOCLOPRAMIDE [Concomitant]
  8. MAGNESIUM HYDROXIDE TAB [Concomitant]
  9. SENNA [Concomitant]
  10. CO-PROXAMOL [Concomitant]
  11. CYCLIZINE [Concomitant]
  12. ERYTHROMYCIN [Concomitant]
  13. CEFUROXIME [Concomitant]
  14. METRONIDAZOLE [Concomitant]
  15. ENOXAPARIN SODIUM [Concomitant]
  16. GLICLAZIDE [Concomitant]
  17. PARACETAMOL [Concomitant]

REACTIONS (3)
  - DIABETES MELLITUS [None]
  - LACTIC ACIDOSIS [None]
  - RENAL FAILURE [None]
